FAERS Safety Report 7389545-2 (Version None)
Quarter: 2011Q1

REPORT INFORMATION
  Report Type: 
  Country: None (occurrence: None)
  Receive Date: 20110325
  Receipt Date: 20110314
  Transmission Date: 20110831
  Serious: Yes (Hospitalization)
  Sender: FDA-Public Use
  Company Number: B0707500A

PATIENT
  Age: 67 Year

DRUGS (1)
  1. VALACYCLOVIR [Suspect]
     Indication: HERPES ZOSTER

REACTIONS (3)
  - NEUROTOXICITY [None]
  - OVERDOSE [None]
  - HALLUCINATION [None]
